FAERS Safety Report 4464212-3 (Version None)
Quarter: 2004Q4

REPORT INFORMATION
  Report Type: 
  Country: None (occurrence: None)
  Receive Date: 20041001
  Receipt Date: 20040716
  Transmission Date: 20050328
  Serious: Yes (Other)
  Sender: FDA-Public Use
  Company Number: JP-GLAXOSMITHKLINE-B0340346A

PATIENT
  Age: 66 Year
  Sex: Female
  Weight: 40 kg

DRUGS (5)
  1. PAXIL [Suspect]
     Indication: DEPRESSION
     Route: 048
     Dates: start: 20040621, end: 20040705
  2. SYMMETREL [Concomitant]
     Route: 048
  3. LENDORMIN [Concomitant]
     Route: 048
  4. AKINETON [Concomitant]
     Route: 065
  5. AMOXAN [Concomitant]
     Indication: DEPRESSION
     Route: 048
     Dates: start: 20040113

REACTIONS (13)
  - AGITATION [None]
  - ARRHYTHMIA [None]
  - BLOOD PRESSURE INCREASED [None]
  - DEMENTIA [None]
  - GAIT DISTURBANCE [None]
  - HYPERHIDROSIS [None]
  - HYPERTENSION [None]
  - INCONTINENCE [None]
  - IRRITABILITY [None]
  - PARKINSONISM [None]
  - PYREXIA [None]
  - SEROTONIN SYNDROME [None]
  - TREMOR [None]
